FAERS Safety Report 7733860-7 (Version None)
Quarter: 2011Q3

REPORT INFORMATION
  Report Type: 
  Country: None (occurrence: None)
  Receive Date: 20110907
  Receipt Date: 20110906
  Transmission Date: 20111222
  Serious: Yes (Disabling)
  Sender: FDA-Public Use
  Company Number: DK-PFIZER INC-2011185606

PATIENT
  Age: 33 Year
  Sex: Female

DRUGS (3)
  1. TAXOTERE [Suspect]
     Indication: BREAST CANCER FEMALE
     Dosage: UNK
     Dates: start: 20090928
  2. EPIRUBICIN HYDROCHLORIDE [Suspect]
     Indication: BREAST CANCER FEMALE
     Dates: start: 20091019
  3. CYCLOPHOSPHAMIDE [Suspect]
     Indication: BREAST CANCER FEMALE
     Dates: start: 20090928

REACTIONS (4)
  - PARALYSIS [None]
  - ARTHRALGIA [None]
  - MYALGIA [None]
  - PARAESTHESIA [None]
